FAERS Safety Report 18394779 (Version 1)
Quarter: 2020Q4

REPORT INFORMATION
  Report Type: Spontaneous
  Country: US (occurrence: US)
  Receive Date: 20201016
  Receipt Date: 20201016
  Transmission Date: 20210114
  Serious: No
  Sender: FDA-Public Use
  Company Number: US-PFIZER INC-2020400662

PATIENT
  Age: 67 Year
  Sex: Female
  Weight: 63.4 kg

DRUGS (1)
  1. IBRANCE [Suspect]
     Active Substance: PALBOCICLIB
     Indication: BREAST CANCER
     Dosage: 75 MG, CYCLIC (1 DAILY FOR 21 DAYS)
     Route: 048

REACTIONS (1)
  - Neoplasm progression [Unknown]
